FAERS Safety Report 6663528-X (Version None)
Quarter: 2010Q1

REPORT INFORMATION
  Report Type: 
  Country: None (occurrence: None)
  Receive Date: 20100331
  Receipt Date: 20100331
  Transmission Date: 20100710
  Serious: Yes (Disabling)
  Sender: FDA-Public Use
  Company Number: None

PATIENT
  Sex: Female
  Weight: 100 kg

DRUGS (3)
  1. BUPIVACAINE/SUFENTANIL (COMPOUNDED) [Suspect]
     Indication: ABNORMAL LABOUR
     Dosage: 3 MG ONCE EPIDURAL
     Route: 008
     Dates: start: 20100317, end: 20100317
  2. BUPIVACAINE/SUFENTANIL (COMPOUNDED) [Suspect]
     Indication: DELIVERY
     Dosage: 3 MG ONCE EPIDURAL
     Route: 008
     Dates: start: 20100317, end: 20100317
  3. SUFENTANIL CITRATE [Suspect]
     Dosage: 1.5 MCG ONCE EPIDURAL
     Route: 008
     Dates: start: 20100317, end: 20100317

REACTIONS (4)
  - DRUG EXPOSURE DURING PREGNANCY [None]
  - HYPOTENSION [None]
  - MUSCULAR WEAKNESS [None]
  - SEDATION [None]
